FAERS Safety Report 7357867-7 (Version None)
Quarter: 2011Q1

REPORT INFORMATION
  Report Type: 
  Country: None (occurrence: None)
  Receive Date: 20110307
  Receipt Date: 20100420
  Transmission Date: 20110831
  Serious: No
  Sender: FDA-Public Use
  Company Number: AEDEU201000123

PATIENT
  Age: 49 Year
  Sex: Male

DRUGS (11)
  1. LUMIGAN [Concomitant]
  2. ARTELAC /00445101/ [Concomitant]
  3. AERODUR [Concomitant]
  4. SYMBICORT [Concomitant]
  5. COSOPT /01553801/ [Concomitant]
  6. BRONCHORETARD [Concomitant]
  7. DELIX /00885601/ [Concomitant]
  8. PROLASTIN [Suspect]
     Indication: ALPHA-1 ANTI-TRYPSIN DEFICIENCY
     Dosage: 5 GM; QM; IV
     Route: 042
     Dates: start: 19991001
  9. ALPHAGAN /01341102/ [Concomitant]
  10. ALLOPURINOL [Concomitant]
  11. OMEPRAZOLE SODIUM [Concomitant]

REACTIONS (1)
  - HYPOTENSION [None]
